FAERS Safety Report 13906436 (Version 3)
Quarter: 2025Q1

REPORT INFORMATION
  Report Type: Spontaneous
  Country: JP (occurrence: JP)
  Receive Date: 20170825
  Receipt Date: 20250124
  Transmission Date: 20250409
  Serious: Yes (Hospitalization)
  Sender: PFIZER
  Company Number: JP-PFIZER INC-2017050208

PATIENT
  Sex: Male

DRUGS (2)
  1. INLYTA [Suspect]
     Active Substance: AXITINIB
     Route: 048
  2. INLYTA [Suspect]
     Active Substance: AXITINIB

REACTIONS (3)
  - Dehydration [Unknown]
  - Hepatic function abnormal [Unknown]
  - Protein urine [Unknown]
